FAERS Safety Report 11272919 (Version 1)
Quarter: 2015Q2

REPORT INFORMATION
  Report Type: Spontaneous
  Country: US (occurrence: None)
  Receive Date: 20150625
  Receipt Date: 20150625
  Transmission Date: 20150821
  Serious: No
  Sender: FDA-Public Use
  Company Number: A-US2014-110345

PATIENT
  Age: 52 Year
  Sex: Female

DRUGS (3)
  1. ADCIRCA [Concomitant]
     Active Substance: TADALAFIL
  2. COUMADIN [Concomitant]
     Active Substance: WARFARIN SODIUM
  3. OPSUMIT [Suspect]
     Active Substance: MACITENTAN
     Indication: PULMONARY HYPERTENSION
     Route: 048

REACTIONS (7)
  - Gastrointestinal pain [None]
  - Abdominal pain upper [None]
  - Fatigue [None]
  - Blood creatinine increased [None]
  - Night sweats [None]
  - Chest discomfort [None]
  - Abdominal pain [None]
